FAERS Safety Report 8511899-1 (Version None)
Quarter: 2012Q3

REPORT INFORMATION
  Report Type: 
  Country: None (occurrence: None)
  Receive Date: 20120716
  Receipt Date: 20120710
  Transmission Date: 20120928
  Serious: Yes (Other)
  Sender: FDA-Public Use
  Company Number: NL-PFIZER INC-2012164993

PATIENT
  Age: 67 Year
  Sex: Male

DRUGS (1)
  1. ATORVASTATIN CALCIUM [Suspect]
     Dosage: 10 (UNIT UNKNOWN), UNK

REACTIONS (1)
  - LOSS OF CONSCIOUSNESS [None]
